FAERS Safety Report 20019625 (Version 2)
Quarter: 2021Q4

REPORT INFORMATION
  Report Type: Other
  Country: US (occurrence: US)
  Receive Date: 20211101
  Receipt Date: 20211110
  Transmission Date: 20220303
  Serious: No
  Sender: FDA-Public Use
  Company Number: US-SUNOVION-2021SUN004068

PATIENT

DRUGS (1)
  1. KYNMOBI [Suspect]
     Active Substance: APOMORPHINE HYDROCHLORIDE
     Dosage: UNK
     Route: 060

REACTIONS (1)
  - Blood pressure abnormal [Unknown]
